FAERS Safety Report 5729952-4 (Version None)
Quarter: 2008Q2

REPORT INFORMATION
  Report Type: 
  Country: None (occurrence: None)
  Receive Date: 20080507
  Receipt Date: 20080104
  Transmission Date: 20081010
  Serious: No
  Sender: FDA-Public Use
  Company Number: US-BAYER-200810466NA

PATIENT
  Age: 32 Year
  Sex: Female
  Weight: 61 kg

DRUGS (1)
  1. MIRENA [Suspect]
     Indication: CONTRACEPTION
     Route: 015
     Dates: start: 20071119

REACTIONS (4)
  - PANIC ATTACK [None]
  - PROCEDURAL PAIN [None]
  - SUPPRESSED LACTATION [None]
  - VAGINAL HAEMORRHAGE [None]
